FAERS Safety Report 7458707-8 (Version None)
Quarter: 2011Q2

REPORT INFORMATION
  Report Type: 
  Country: None (occurrence: None)
  Receive Date: 20110504
  Receipt Date: 20110420
  Transmission Date: 20111010
  Serious: Yes (Other)
  Sender: FDA-Public Use
  Company Number: US-JNJFOC-20110411860

PATIENT
  Age: 24 Year
  Sex: Female
  Weight: 52.16 kg

DRUGS (3)
  1. ASTHMA INHALER [Concomitant]
     Indication: ASTHMA
     Route: 055
  2. BIRTH CONTROL PILLS [Concomitant]
     Indication: CONTRACEPTION
     Route: 048
  3. LISTERINE TOTAL CARE ANTICAVITY MOUTHWASH CINNAMINT [Suspect]
     Indication: DENTAL DISORDER PROPHYLAXIS
     Route: 048

REACTIONS (5)
  - SENSITIVITY OF TEETH [None]
  - LIP SWELLING [None]
  - CHEILITIS [None]
  - CHEMICAL INJURY [None]
  - ORAL MUCOSAL EXFOLIATION [None]
